FAERS Safety Report 5868292-X (Version None)
Quarter: 2008Q3

REPORT INFORMATION
  Report Type: 
  Country: None (occurrence: None)
  Receive Date: 20080818
  Receipt Date: 20080418
  Transmission Date: 20090109
  Serious: No
  Sender: FDA-Public Use
  Company Number: 20085073

PATIENT
  Sex: Female

DRUGS (2)
  1. LIORESAL [Suspect]
     Indication: MUSCLE SPASTICITY
     Dosage: DAILY, INTRATHECAL
     Route: 037
     Dates: start: 20071001
  2. PRIALT AND DILAUDID [Concomitant]

REACTIONS (7)
  - CONFUSIONAL STATE [None]
  - DEPRESSION [None]
  - DIZZINESS [None]
  - GAIT DISTURBANCE [None]
  - NAUSEA [None]
  - OEDEMA PERIPHERAL [None]
  - THINKING ABNORMAL [None]
